FAERS Safety Report 9786990 (Version 8)
Quarter: 2014Q2

REPORT INFORMATION
  Report Type: Spontaneous
  Country: US (occurrence: US)
  Receive Date: 20131227
  Receipt Date: 20140414
  Transmission Date: 20141212
  Serious: Yes (Other)
  Sender: FDA-Public Use
  Company Number: CHPA2013US018804

PATIENT
  Age: 71 Year
  Sex: Female

DRUGS (4)
  1. GAS-X EXTRA STRENGTH SOFTGELS [Suspect]
     Indication: FLATULENCE
     Dosage: UNK
     Route: 048
     Dates: start: 1975
  2. GAS-X EXTRA STRENGTH SOFTGELS [Suspect]
     Indication: ABDOMINAL DISTENSION
  3. GAS-X EXTSTR CHEWABLE TABS CHERRY CREME [Suspect]
     Indication: FLATULENCE
  4. GAS-X EXTSTR CHEWABLE TABS CHERRY CREME [Suspect]
     Indication: ABDOMINAL DISTENSION

REACTIONS (10)
  - Hypoglycaemia [Recovered/Resolved]
  - Blood glucose fluctuation [Recovered/Resolved]
  - Dry mouth [Unknown]
  - Feeling abnormal [Recovered/Resolved]
  - Malaise [Unknown]
  - Insomnia [Unknown]
  - Blood glucose decreased [Recovered/Resolved]
  - Conjunctivitis [Recovered/Resolved]
  - Incorrect dose administered [Unknown]
  - Drug ineffective [Unknown]
